FAERS Safety Report 8960396 (Version 2)
Quarter: 2012Q4

REPORT INFORMATION
  Report Type: 
  Country: US (occurrence: US)
  Receive Date: 20121212
  Receipt Date: 20121218
  Transmission Date: 20130627
  Serious: Yes (Hospitalization)
  Sender: FDA-Public Use
  Company Number: US-BAYER-2012-128824

PATIENT
  Age: 36 Year
  Sex: Female
  Weight: 78.01 kg

DRUGS (2)
  1. YASMIN [Suspect]
     Indication: MENSTRUAL CYCLE MANAGEMENT
     Dosage: UNK
  2. OCELLA [Suspect]
     Dosage: UNK

REACTIONS (2)
  - Deep vein thrombosis [None]
  - Off label use [None]
